FAERS Safety Report 22371276 (Version 1)
Quarter: 2023Q2

REPORT INFORMATION
  Report Type: Report from Study
  Country: CA (occurrence: CA)
  Receive Date: 20230526
  Receipt Date: 20230526
  Transmission Date: 20230722
  Serious: Yes (Hospitalization)
  Sender: FDA-Public Use
  Company Number: CA-CHIESI-2022CHF03705

PATIENT
  Age: 59 Year
  Sex: Female
  Weight: 54.4 kg

DRUGS (1)
  1. DEFERIPRONE [Suspect]
     Active Substance: DEFERIPRONE
     Indication: Sickle cell anaemia
     Dosage: 4000 MILLIGRAM, QD
     Route: 048
     Dates: start: 20220719

REACTIONS (4)
  - Ill-defined disorder [Recovering/Resolving]
  - Malaise [Unknown]
  - Vomiting [Unknown]
  - Off label use [Not Recovered/Not Resolved]

NARRATIVE: CASE EVENT DATE: 20220719
